FAERS Safety Report 5191593-8 (Version None)
Quarter: 2006Q4

REPORT INFORMATION
  Report Type: 
  Country: None (occurrence: None)
  Receive Date: 20061219
  Receipt Date: 20061208
  Transmission Date: 20070319
  Serious: Yes (Hospitalization, Other)
  Sender: FDA-Public Use
  Company Number: GXKR2006GB00495

PATIENT
  Age: 69 Year
  Sex: Male

DRUGS (6)
  1. RAMIPRIL [Suspect]
     Dates: start: 19980101
  2. FELODIPINE [Suspect]
  3. ATENOLOL [Suspect]
  4. ASPIRIN [Suspect]
  5. AMITRIPTYLINE HCL [Suspect]
  6. ATORVASTATIN CALCIUM [Suspect]

REACTIONS (5)
  - ANGIONEUROTIC OEDEMA [None]
  - DYSKINESIA [None]
  - POST PROCEDURAL COMPLICATION [None]
  - SALIVARY HYPERSECRETION [None]
  - VOCAL CORD POLYPECTOMY [None]
